FAERS Safety Report 18082862 (Version 4)
Quarter: 2025Q3

REPORT INFORMATION
  Report Type: Spontaneous
  Country: EU (occurrence: EU)
  Receive Date: 20200729
  Receipt Date: 20250825
  Transmission Date: 20251021
  Serious: Yes (Other)
  Sender: AUROBINDO
  Company Number: EU-002147023-NVSC2020PL192215

PATIENT
  Age: 40 Year
  Sex: Female

DRUGS (4)
  1. LETROZOLE [Suspect]
     Active Substance: LETROZOLE
     Indication: Breast cancer
     Dosage: 2.5 MILLIGRAM, ONCE A DAY
     Route: 048
     Dates: start: 201812
  2. LETROZOLE [Suspect]
     Active Substance: LETROZOLE
     Indication: Invasive lobular breast carcinoma
  3. RIBOCICLIB [Suspect]
     Active Substance: RIBOCICLIB
     Indication: Invasive lobular breast carcinoma
     Dosage: 00 MILLIGRAM, ONCE A DAY (FROM DAY 1 TO DAY 21, FOLLOWED BY A 7-DAY BREAK)
     Route: 048
     Dates: start: 201812
  4. RIBOCICLIB [Suspect]
     Active Substance: RIBOCICLIB
     Indication: Breast cancer
     Dosage: 400 MILLIGRAM, ONCE A DAY
     Route: 065

REACTIONS (1)
  - Neutropenia [Recovered/Resolved]
